FAERS Safety Report 22315409 (Version 1)
Quarter: 2023Q2

REPORT INFORMATION
  Report Type: Spontaneous
  Country: US (occurrence: US)
  Receive Date: 20230512
  Receipt Date: 20230512
  Transmission Date: 20230721
  Serious: No
  Sender: FDA-Public Use
  Company Number: US-TEVA-2023-US-2887304

PATIENT
  Age: 69 Year
  Sex: Male

DRUGS (1)
  1. OLOPATADINE [Suspect]
     Active Substance: OLOPATADINE
     Indication: Product used for unknown indication
     Dosage: 0.5 FL OZ
     Route: 047

REACTIONS (1)
  - Vision blurred [Unknown]
